FAERS Safety Report 17418007 (Version 4)
Quarter: 2020Q2

REPORT INFORMATION
  Report Type: Spontaneous
  Country: US (occurrence: US)
  Receive Date: 20200213
  Receipt Date: 20200410
  Transmission Date: 20200713
  Serious: Yes (Hospitalization)
  Sender: FDA-Public Use
  Company Number: US-ACTELION-A-US2020-201545

PATIENT
  Age: 35 Year
  Sex: Female

DRUGS (5)
  1. OPSUMIT [Suspect]
     Active Substance: MACITENTAN
     Indication: PULMONARY ARTERIAL HYPERTENSION
     Dosage: 10 MG, QD
     Route: 048
     Dates: start: 20200124
  2. VELETRI [Suspect]
     Active Substance: EPOPROSTENOL
     Dosage: 18 NG/KG, PER MIN
     Route: 042
     Dates: start: 20200124
  3. VELETRI [Suspect]
     Active Substance: EPOPROSTENOL
     Dosage: IV INFUSION PUMP RATE AT 74ML/24 HOURS DAILY
     Route: 042
     Dates: start: 201908
  4. TADALAFIL. [Concomitant]
     Active Substance: TADALAFIL
     Dosage: 40 MG, QD
     Dates: start: 201911
  5. VELETRI [Suspect]
     Active Substance: EPOPROSTENOL
     Indication: PULMONARY ARTERIAL HYPERTENSION
     Dosage: 18.25 NG/KG, PER MIN
     Route: 042

REACTIONS (6)
  - Ocular hyperaemia [Not Recovered/Not Resolved]
  - Bacterial infection [Unknown]
  - Nasal congestion [Not Recovered/Not Resolved]
  - Appendicitis [Unknown]
  - Appendicectomy [Unknown]
  - Dizziness [Not Recovered/Not Resolved]

NARRATIVE: CASE EVENT DATE: 20200124
